FAERS Safety Report 7811923-5 (Version None)
Quarter: 2011Q4

REPORT INFORMATION
  Report Type: 
  Country: None (occurrence: None)
  Receive Date: 20111013
  Receipt Date: 20111010
  Transmission Date: 20120403
  Serious: Yes (Hospitalization)
  Sender: FDA-Public Use
  Company Number: PHHY2011NL89488

PATIENT
  Sex: Male

DRUGS (3)
  1. ZOMETA [Suspect]
     Dosage: 4 MG/ 5 ML
     Dates: start: 20110913
  2. ZOMETA [Suspect]
     Dosage: 4 MG/ 5 ML
     Dates: start: 20111010
  3. ZOMETA [Suspect]
     Indication: PROSTATE CANCER METASTATIC
     Dosage: 4 MG/ 5 ML
     Dates: start: 20101019

REACTIONS (1)
  - ARRHYTHMIA [None]
